FAERS Safety Report 22254824 (Version 2)
Quarter: 2024Q2

REPORT INFORMATION
  Report Type: Report from Study
  Country: DE (occurrence: DE)
  Receive Date: 20230426
  Receipt Date: 20240416
  Transmission Date: 20240715
  Serious: Yes (Hospitalization, Other)
  Sender: FDA-Public Use
  Company Number: DE-UCBSA-2023021046

PATIENT
  Sex: Female

DRUGS (9)
  1. CERTOLIZUMAB PEGOL [Suspect]
     Active Substance: CERTOLIZUMAB PEGOL
     Indication: Rheumatoid arthritis
     Dosage: 200 MILLIGRAM
     Dates: start: 201702, end: 201705
  2. METHOTREXATE [Concomitant]
     Active Substance: METHOTREXATE
     Indication: Rheumatoid arthritis
     Dosage: 15 MILLIGRAM
  3. SULFASALAZINE [Concomitant]
     Active Substance: SULFASALAZINE
     Indication: Rheumatoid arthritis
     Dosage: 500 MILLIGRAM
  4. HYDROXYCHLOROQUINE SULFATE [Concomitant]
     Active Substance: HYDROXYCHLOROQUINE SULFATE
     Indication: Rheumatoid arthritis
     Dosage: 200 MILLIGRAM
  5. OLUMIANT [Concomitant]
     Active Substance: BARICITINIB
     Indication: Rheumatoid arthritis
     Dosage: 2 MILLIGRAM
     Dates: start: 201912, end: 202010
  6. ORENCIA [Concomitant]
     Active Substance: ABATACEPT
     Indication: Product used for unknown indication
     Dosage: 125 MILLIGRAM
     Dates: start: 202208, end: 202209
  7. ORENCIA [Concomitant]
     Active Substance: ABATACEPT
     Dosage: 125 MILLIGRAM
     Dates: start: 202305, end: 202307
  8. TOCILIZUMAB [Concomitant]
     Active Substance: TOCILIZUMAB
     Indication: Product used for unknown indication
     Dosage: 162 MILLIGRAM
     Dates: start: 201705, end: 201706
  9. ERELZI [Concomitant]
     Active Substance: ETANERCEPT-SZZS
     Indication: Product used for unknown indication
     Dosage: 50 MILLIGRAM
     Dates: start: 202109, end: 202110

REACTIONS (10)
  - Cervicobrachial syndrome [Recovered/Resolved]
  - Osteochondrosis [Recovered/Resolved]
  - Intervertebral disc degeneration [Recovered/Resolved]
  - Subclavian artery stenosis [Unknown]
  - Rheumatoid arthritis [Unknown]
  - Biliary dilatation [Unknown]
  - Osteoarthritis [Unknown]
  - Rheumatoid lung [Unknown]
  - Dyspnoea [Unknown]
  - Viral upper respiratory tract infection [Unknown]

NARRATIVE: CASE EVENT DATE: 20220308
